FAERS Safety Report 8364051-7 (Version None)
Quarter: 2012Q2

REPORT INFORMATION
  Report Type: 
  Country: None (occurrence: None)
  Receive Date: 20120516
  Receipt Date: 20120301
  Transmission Date: 20120825
  Serious: No
  Sender: FDA-Public Use
  Company Number: US-ALEXION-A201200393

PATIENT
  Sex: Male

DRUGS (8)
  1. WARFARIN SODIUM [Concomitant]
     Dosage: UNK
  2. CALCIUM CITRATE [Concomitant]
     Dosage: UNK
  3. SOLIRIS [Suspect]
     Dosage: 600 MG, Q2W
     Route: 042
  4. ACIPHEX [Concomitant]
     Dosage: UNK
  5. SOLIRIS [Suspect]
     Indication: PAROXYSMAL NOCTURNAL HAEMOGLOBINURIA
     Dosage: 600 MG, Q 10 DAYS
     Route: 042
  6. SOLIRIS [Suspect]
     Dosage: 900 MG, Q2W
     Route: 042
     Dates: start: 20120301
  7. FOLIC ACID [Concomitant]
     Dosage: UNK
  8. TRIAMTERENE [Concomitant]
     Dosage: UNK

REACTIONS (6)
  - HAEMATURIA [None]
  - BLOOD LACTATE DEHYDROGENASE INCREASED [None]
  - BLOOD BILIRUBIN INCREASED [None]
  - CHROMATURIA [None]
  - ALANINE AMINOTRANSFERASE INCREASED [None]
  - ASPARTATE AMINOTRANSFERASE INCREASED [None]
